FAERS Safety Report 24228240 (Version 3)
Quarter: 2024Q3

REPORT INFORMATION
  Report Type: Spontaneous
  Country: IN (occurrence: IN)
  Receive Date: 20240820
  Receipt Date: 20240925
  Transmission Date: 20241016
  Serious: Yes (Disabling)
  Sender: PFIZER
  Company Number: IN-PFIZER INC-PV202400106402

PATIENT
  Age: 68 Year
  Sex: Female

DRUGS (6)
  1. LORLATINIB [Suspect]
     Active Substance: LORLATINIB
     Dosage: 100 MG ONCE DAILY
     Route: 048
     Dates: start: 20240630
  2. LORLATINIB [Suspect]
     Active Substance: LORLATINIB
     Dosage: 100 MG ONCE DAILY
     Route: 048
     Dates: start: 20240701
  3. LORLATINIB [Suspect]
     Active Substance: LORLATINIB
     Dosage: 100 MG ONCE DAILY
     Route: 048
     Dates: start: 20240721
  4. PREGALIN D [Concomitant]
     Dosage: UNK
  5. DOMPERIDONE\PANTOPRAZOLE SODIUM [Concomitant]
     Active Substance: DOMPERIDONE\PANTOPRAZOLE SODIUM
     Dosage: UNK
  6. ULTRACET [Concomitant]
     Active Substance: ACETAMINOPHEN\TRAMADOL HYDROCHLORIDE
     Dosage: UNK

REACTIONS (16)
  - Fall [Not Recovered/Not Resolved]
  - Constipation [Unknown]
  - Fatigue [Unknown]
  - Asthenia [Unknown]
  - Gastrointestinal disorder [Unknown]
  - Abdominal distension [Unknown]
  - Hyperchlorhydria [Unknown]
  - Anaemia [Unknown]
  - Pain [Unknown]
  - Balance disorder [Unknown]
  - Coordination abnormal [Unknown]
  - Mobility decreased [Unknown]
  - Anxiety [Unknown]
  - Stress [Unknown]
  - Tension [Unknown]
  - Neoplasm progression [Unknown]

NARRATIVE: CASE EVENT DATE: 20240813
